FAERS Safety Report 15088378 (Version 3)
Quarter: 2018Q3

REPORT INFORMATION
  Report Type: Report from Study
  Country: None (occurrence: US)
  Receive Date: 20180629
  Receipt Date: 20180806
  Transmission Date: 20181010
  Serious: Yes (Hospitalization)
  Sender: FDA-Public Use
  Company Number: US-ABBVIE-18K-163-2402066-00

PATIENT
  Age: 62 Year
  Sex: Female

DRUGS (3)
  1. HUMIRA [Suspect]
     Active Substance: ADALIMUMAB
     Indication: COLITIS ULCERATIVE
     Dosage: DAY 1
     Route: 058
     Dates: start: 20180617, end: 20180617
  2. HUMIRA [Suspect]
     Active Substance: ADALIMUMAB
     Route: 058
     Dates: start: 20180715
  3. HUMIRA [Suspect]
     Active Substance: ADALIMUMAB
     Dosage: DAY 15
     Route: 058
     Dates: start: 20180701, end: 20180701

REACTIONS (14)
  - Malaise [Not Recovered/Not Resolved]
  - Blood iron decreased [Not Recovered/Not Resolved]
  - Fear [Unknown]
  - Insomnia [Unknown]
  - Rhinalgia [Unknown]
  - Anxiety [Unknown]
  - Injection site pain [Unknown]
  - Nausea [Recovered/Resolved]
  - Cystitis [Unknown]
  - Fatigue [Unknown]
  - Depressed mood [Recovering/Resolving]
  - Night sweats [Not Recovered/Not Resolved]
  - Dyspnoea [Unknown]
  - Nausea [Recovered/Resolved]

NARRATIVE: CASE EVENT DATE: 201806
